FAERS Safety Report 18645339 (Version 1)
Quarter: 2020Q4

REPORT INFORMATION
  Report Type: Spontaneous
  Country: PT (occurrence: PT)
  Receive Date: 20201221
  Receipt Date: 20201221
  Transmission Date: 20210114
  Serious: Yes (Other)
  Sender: FDA-Public Use
  Company Number: PT-ALLERGAN-2049104US

PATIENT
  Age: 30 Year
  Sex: Male

DRUGS (5)
  1. NALTREXONE [Concomitant]
     Active Substance: NALTREXONE
  2. DIAZEPAM. [Concomitant]
     Active Substance: DIAZEPAM
  3. CARIPRAZINE HCL - BP [Suspect]
     Active Substance: CARIPRAZINE HYDROCHLORIDE
     Indication: ALCOHOLISM
     Dosage: 1.5 MG, QD
     Route: 048
     Dates: start: 20201122, end: 20201126
  4. SERTRALINE [Concomitant]
     Active Substance: SERTRALINE HYDROCHLORIDE
  5. MIRTAZAPINE. [Concomitant]
     Active Substance: MIRTAZAPINE

REACTIONS (2)
  - Urinary retention [Recovered/Resolved]
  - Off label use [Unknown]

NARRATIVE: CASE EVENT DATE: 20201123
